FAERS Safety Report 6770474-X (Version None)
Quarter: 2010Q2

REPORT INFORMATION
  Report Type: 
  Country: None (occurrence: None)
  Receive Date: 20100615
  Receipt Date: 20100611
  Transmission Date: 20101027
  Serious: Yes (Death)
  Sender: FDA-Public Use
  Company Number: US-GILEAD-2010-0029759

PATIENT
  Sex: Female

DRUGS (7)
  1. LETAIRIS [Suspect]
     Indication: PULMONARY ARTERIAL HYPERTENSION
     Route: 048
     Dates: start: 20100426, end: 20100601
  2. FUROSEMIDE [Concomitant]
  3. AMLODIPINE [Concomitant]
  4. ADVAIR DISKUS 100/50 [Concomitant]
  5. PROAIR HFA [Concomitant]
  6. SINGULAIR [Concomitant]
  7. POTASSIUM [Concomitant]

REACTIONS (2)
  - PULMONARY ARTERIAL HYPERTENSION [None]
  - RESPIRATORY FAILURE [None]
